FAERS Safety Report 16642187 (Version 2)
Quarter: 2020Q1

REPORT INFORMATION
  Report Type: Report from Study
  Country: US (occurrence: US)
  Receive Date: 20190729
  Receipt Date: 20200331
  Transmission Date: 20200409
  Serious: Yes (Other)
  Sender: FDA-Public Use
  Company Number: US-ROCHE-2358526

PATIENT
  Age: 58 Year
  Sex: Female
  Weight: 68.55 kg

DRUGS (12)
  1. PROTONIX [Concomitant]
     Active Substance: PANTOPRAZOLE SODIUM
     Route: 065
  2. IMITREX [Concomitant]
     Active Substance: SUMATRIPTAN SUCCINATE
  3. FLECAINIDE [Concomitant]
     Active Substance: FLECAINIDE
     Route: 065
  4. PROLIA [Concomitant]
     Active Substance: DENOSUMAB
     Route: 065
  5. OCREVUS [Suspect]
     Active Substance: OCRELIZUMAB
     Route: 042
     Dates: start: 20190623
  6. TOPROL XL [Concomitant]
     Active Substance: METOPROLOL SUCCINATE
     Route: 065
  7. FOLIC ACID. [Concomitant]
     Active Substance: FOLIC ACID
     Route: 065
  8. OCREVUS [Suspect]
     Active Substance: OCRELIZUMAB
     Indication: SECONDARY PROGRESSIVE MULTIPLE SCLEROSIS
     Dosage: 2ND HALF INFUSION ;ONGOING: UNKNOWN
     Route: 042
     Dates: start: 20190705
  9. OCREVUS [Suspect]
     Active Substance: OCRELIZUMAB
     Indication: RELAPSING MULTIPLE SCLEROSIS
     Dosage: FIRST HALF INFUSION ;ONGOING: NO
     Route: 042
     Dates: start: 20190620
  10. CARISOPRODOL. [Concomitant]
     Active Substance: CARISOPRODOL
     Route: 065
  11. HYDROCODONE [Concomitant]
     Active Substance: HYDROCODONE
  12. LISINOPRIL. [Concomitant]
     Active Substance: LISINOPRIL
     Route: 065

REACTIONS (9)
  - Multiple sclerosis relapse [Recovering/Resolving]
  - Blood folate decreased [Unknown]
  - Urinary tract infection [Not Recovered/Not Resolved]
  - White blood cell count decreased [Recovering/Resolving]
  - Blood iron decreased [Unknown]
  - Blood sodium decreased [Recovering/Resolving]
  - Herpes zoster [Not Recovered/Not Resolved]
  - Nasopharyngitis [Not Recovered/Not Resolved]
  - Blood immunoglobulin G decreased [Unknown]

NARRATIVE: CASE EVENT DATE: 201907
